FAERS Safety Report 6682062-4 (Version None)
Quarter: 2010Q2

REPORT INFORMATION
  Report Type: 
  Country: None (occurrence: None)
  Receive Date: 20100415
  Receipt Date: 20100405
  Transmission Date: 20101027
  Serious: Yes (Hospitalization)
  Sender: FDA-Public Use
  Company Number: US-BIOGENIDEC-2008BI028793

PATIENT
  Age: 49 Year
  Sex: Female

DRUGS (2)
  1. AVONEX [Suspect]
     Indication: MULTIPLE SCLEROSIS
     Route: 030
     Dates: start: 19990601, end: 20050424
  2. AVONEX [Suspect]
     Route: 030
     Dates: start: 20051124

REACTIONS (5)
  - BENIGN BREAST NEOPLASM [None]
  - BONE DISORDER [None]
  - BREAST CYST [None]
  - JAW DISORDER [None]
  - SPINAL DISORDER [None]
